FAERS Safety Report 9398517 (Version 1)
Quarter: 2013Q3

REPORT INFORMATION
  Report Type: Spontaneous
  Country: US (occurrence: US)
  Receive Date: 20130712
  Receipt Date: 20130712
  Transmission Date: 20140515
  Serious: No
  Sender: FDA-Public Use
  Company Number: US-009507513-1307USA000957

PATIENT
  Age: 22 Year
  Sex: Female

DRUGS (2)
  1. NUVARING [Suspect]
     Indication: CONTRACEPTION
     Dosage: 1 RING FOR 3 WEEKS
     Route: 067
     Dates: end: 20130531
  2. PROZAC [Concomitant]

REACTIONS (1)
  - Abnormal withdrawal bleeding [Unknown]
